FAERS Safety Report 24877485 (Version 9)
Quarter: 2025Q3

REPORT INFORMATION
  Report Type: Report from Study
  Country: CA (occurrence: CA)
  Receive Date: 20250123
  Receipt Date: 20250701
  Transmission Date: 20251020
  Serious: Yes (Other)
  Sender: SANDOZ
  Company Number: CA-SANDOZ-NVSC2022CA240007

PATIENT
  Age: 75 Year
  Sex: Female

DRUGS (45)
  1. HYRIMOZ [Suspect]
     Active Substance: ADALIMUMAB-ADAZ
     Route: 058
     Dates: start: 20220818
  2. HYRIMOZ [Suspect]
     Active Substance: ADALIMUMAB-ADAZ
     Route: 058
     Dates: start: 20221010
  3. HYRIMOZ [Suspect]
     Active Substance: ADALIMUMAB-ADAZ
     Indication: Colitis ulcerative
     Route: 058
     Dates: start: 20220525
  4. HYRIMOZ [Suspect]
     Active Substance: ADALIMUMAB-ADAZ
     Route: 058
     Dates: start: 20221202
  5. HYRIMOZ [Suspect]
     Active Substance: ADALIMUMAB-ADAZ
     Route: 058
     Dates: start: 20221231
  6. HYRIMOZ [Suspect]
     Active Substance: ADALIMUMAB-ADAZ
     Route: 058
     Dates: start: 20230209
  7. HYRIMOZ [Suspect]
     Active Substance: ADALIMUMAB-ADAZ
     Route: 058
     Dates: start: 20230220
  8. HYRIMOZ [Suspect]
     Active Substance: ADALIMUMAB-ADAZ
     Route: 058
     Dates: start: 20220525
  9. HYRIMOZ [Suspect]
     Active Substance: ADALIMUMAB-ADAZ
     Route: 058
     Dates: start: 20230402
  10. HYRIMOZ [Suspect]
     Active Substance: ADALIMUMAB-ADAZ
     Route: 058
     Dates: start: 20230313
  11. HYRIMOZ [Suspect]
     Active Substance: ADALIMUMAB-ADAZ
     Route: 058
     Dates: start: 20231128
  12. HYRIMOZ [Suspect]
     Active Substance: ADALIMUMAB-ADAZ
     Route: 058
     Dates: start: 20220525
  13. HYRIMOZ [Suspect]
     Active Substance: ADALIMUMAB-ADAZ
     Route: 058
     Dates: start: 20230421
  14. HYRIMOZ [Suspect]
     Active Substance: ADALIMUMAB-ADAZ
     Route: 058
     Dates: start: 20230430
  15. HYRIMOZ [Suspect]
     Active Substance: ADALIMUMAB-ADAZ
     Route: 058
     Dates: start: 20230621
  16. HYRIMOZ [Suspect]
     Active Substance: ADALIMUMAB-ADAZ
     Route: 058
     Dates: start: 20220525
  17. HYRIMOZ [Suspect]
     Active Substance: ADALIMUMAB-ADAZ
     Route: 065
     Dates: start: 20220525
  18. HYRIMOZ [Suspect]
     Active Substance: ADALIMUMAB-ADAZ
     Route: 058
     Dates: start: 20220525
  19. HYRIMOZ [Suspect]
     Active Substance: ADALIMUMAB-ADAZ
     Route: 065
     Dates: start: 20240503
  20. HYRIMOZ [Suspect]
     Active Substance: ADALIMUMAB-ADAZ
     Route: 058
     Dates: start: 20220525
  21. HYRIMOZ [Suspect]
     Active Substance: ADALIMUMAB-ADAZ
     Route: 058
     Dates: start: 20240402
  22. HYRIMOZ [Suspect]
     Active Substance: ADALIMUMAB-ADAZ
     Route: 058
     Dates: start: 20220525
  23. HYRIMOZ [Suspect]
     Active Substance: ADALIMUMAB-ADAZ
     Route: 058
  24. HYRIMOZ [Suspect]
     Active Substance: ADALIMUMAB-ADAZ
     Route: 058
     Dates: start: 20250319
  25. HYRIMOZ [Suspect]
     Active Substance: ADALIMUMAB-ADAZ
     Route: 058
     Dates: start: 20250418
  26. HYRIMOZ [Suspect]
     Active Substance: ADALIMUMAB-ADAZ
     Route: 058
     Dates: start: 20250120
  27. HYRIMOZ [Suspect]
     Active Substance: ADALIMUMAB-ADAZ
     Route: 058
     Dates: start: 20250129
  28. HYRIMOZ [Suspect]
     Active Substance: ADALIMUMAB-ADAZ
     Route: 058
     Dates: start: 20250310
  29. HYRIMOZ [Suspect]
     Active Substance: ADALIMUMAB-ADAZ
     Route: 058
     Dates: start: 20250525
  30. HYRIMOZ [Suspect]
     Active Substance: ADALIMUMAB-ADAZ
     Route: 058
     Dates: start: 20221111
  31. HYRIMOZ [Suspect]
     Active Substance: ADALIMUMAB-ADAZ
     Route: 058
     Dates: start: 20221121
  32. HYRIMOZ [Suspect]
     Active Substance: ADALIMUMAB-ADAZ
     Route: 058
     Dates: start: 20220919
  33. HYRIMOZ [Suspect]
     Active Substance: ADALIMUMAB-ADAZ
     Route: 058
     Dates: start: 20230412
  34. HYRIMOZ [Suspect]
     Active Substance: ADALIMUMAB-ADAZ
     Route: 058
     Dates: start: 20240301
  35. HYRIMOZ [Suspect]
     Active Substance: ADALIMUMAB-ADAZ
     Route: 065
     Dates: start: 20221031
  36. HYRIMOZ [Suspect]
     Active Substance: ADALIMUMAB-ADAZ
     Route: 058
     Dates: start: 20220909
  37. HYRIMOZ [Suspect]
     Active Substance: ADALIMUMAB-ADAZ
     Route: 058
     Dates: start: 20221211
  38. HYRIMOZ [Suspect]
     Active Substance: ADALIMUMAB-ADAZ
     Route: 058
     Dates: start: 20220930
  39. HYRIMOZ [Suspect]
     Active Substance: ADALIMUMAB-ADAZ
     Route: 058
     Dates: start: 20221222
  40. HYRIMOZ [Suspect]
     Active Substance: ADALIMUMAB-ADAZ
     Route: 065
     Dates: start: 20240625
  41. HYRIMOZ [Suspect]
     Active Substance: ADALIMUMAB-ADAZ
     Route: 065
  42. HYRIMOZ [Suspect]
     Active Substance: ADALIMUMAB-ADAZ
     Route: 065
  43. ACETAMINOPHEN [Concomitant]
     Active Substance: ACETAMINOPHEN
     Indication: Premedication
     Route: 048
  44. DIPHENHYDRAMINE [Concomitant]
     Active Substance: DIPHENHYDRAMINE
     Indication: Product used for unknown indication
     Route: 048
  45. METHYLPREDNISOLONE HEMISUCCINATE [Concomitant]
     Active Substance: METHYLPREDNISOLONE HEMISUCCINATE
     Indication: Product used for unknown indication
     Route: 042

REACTIONS (9)
  - Hemianopia [Recovered/Resolved]
  - Bowel movement irregularity [Recovered/Resolved]
  - Urinary tract infection [Recovered/Resolved]
  - Injection site erythema [Recovered/Resolved]
  - Injection site swelling [Recovered/Resolved]
  - Injection site pain [Recovered/Resolved]
  - Inappropriate schedule of product administration [Unknown]
  - Incorrect dose administered [Unknown]
  - Off label use [Unknown]

NARRATIVE: CASE EVENT DATE: 20220525
